FAERS Safety Report 20031678 (Version 3)
Quarter: 2021Q4

REPORT INFORMATION
  Report Type: Report from Study
  Country: DE (occurrence: DE)
  Receive Date: 20211103
  Receipt Date: 20211115
  Transmission Date: 20220303
  Serious: Yes (Hospitalization)
  Sender: FDA-Public Use
  Company Number: DE-ABBVIE-21K-062-4142034-00

PATIENT
  Age: 54 Year
  Sex: Male
  Weight: 85 kg

DRUGS (2)
  1. GLECAPREVIR\PIBRENTASVIR [Suspect]
     Active Substance: GLECAPREVIR\PIBRENTASVIR
     Indication: Chronic hepatitis C
     Dosage: 100 MG GLECAPREVIR, 40 MG PIBRENTASVIR, 3 TABLETS DAILY
     Route: 048
     Dates: start: 20190507, end: 20190630
  2. NOVALGIN [Concomitant]
     Indication: Product used for unknown indication

REACTIONS (5)
  - Enterovesical fistula [Recovered/Resolved]
  - Diverticulitis [Unknown]
  - Faecaluria [Recovered/Resolved]
  - Dysuria [Unknown]
  - Pneumaturia [Unknown]

NARRATIVE: CASE EVENT DATE: 20211001
